FAERS Safety Report 4688722-9 (Version None)
Quarter: 2005Q2

REPORT INFORMATION
  Report Type: 
  Country: None (occurrence: None)
  Receive Date: 20050608
  Receipt Date: 20050222
  Transmission Date: 20051028
  Serious: No
  Sender: FDA-Public Use
  Company Number: 2004-BP-10965BP

PATIENT
  Age: 86 Year
  Sex: Male
  Weight: 82.1 kg

DRUGS (2)
  1. SPIRIVA [Suspect]
     Indication: EMPHYSEMA
     Dosage: (18 MCG), IH
     Route: 055
  2. SPIRIVA [Suspect]
     Indication: EMPHYSEMA
     Dosage: (18 MCG), IH
     Route: 055

REACTIONS (1)
  - MALAISE [None]
